FAERS Safety Report 5321441-4 (Version None)
Quarter: 2007Q2

REPORT INFORMATION
  Report Type: 
  Country: None (occurrence: None)
  Receive Date: 20070510
  Receipt Date: 20070502
  Transmission Date: 20071010
  Serious: Yes (Other)
  Sender: FDA-Public Use
  Company Number: A0649718A

PATIENT
  Age: 71 Year
  Sex: Female

DRUGS (6)
  1. ADVAIR DISKUS 100/50 [Suspect]
     Indication: ASTHMA
     Dosage: 1PUFF PER DAY
     Route: 055
     Dates: start: 20040101
  2. SINGULAIR [Concomitant]
  3. ESTRADIOL [Concomitant]
  4. ZOCOR [Concomitant]
  5. TRICOR [Concomitant]
  6. CELEBREX [Concomitant]

REACTIONS (2)
  - CORNEAL DISORDER [None]
  - MACULAR DEGENERATION [None]
